FAERS Safety Report 12244366 (Version 1)
Quarter: 2016Q2

REPORT INFORMATION
  Report Type: Other
  Country: CY (occurrence: CY)
  Receive Date: 20160407
  Receipt Date: 20160407
  Transmission Date: 20160815
  Serious: Yes (Death)
  Sender: FDA-Public Use
  Company Number: CY-JUBILANT GENERICS LIMITED-1050316

PATIENT
  Age: 42 Year
  Sex: Male

DRUGS (3)
  1. OLANZAPINE. [Suspect]
     Active Substance: OLANZAPINE
  2. UNSPECIFIED ILLICIT PSYCHOACTIVE PREPARATION UNKNOWN [Suspect]
     Active Substance: UNSPECIFIED INGREDIENT
  3. MIRTAZAPINE. [Suspect]
     Active Substance: MIRTAZAPINE

REACTIONS (13)
  - Oedema peripheral [None]
  - Hepatic steatosis [None]
  - Spleen congestion [None]
  - Arteriosclerosis coronary artery [None]
  - Pulmonary oedema [None]
  - Brain oedema [None]
  - Kidney congestion [None]
  - Myocardial infarction [Fatal]
  - Pulmonary congestion [None]
  - Cardiomegaly [None]
  - Generalised erythema [None]
  - Oedema [None]
  - Toxicity to various agents [Fatal]

NARRATIVE: CASE EVENT DATE: 20160329
